FAERS Safety Report 7646399-4 (Version None)
Quarter: 2011Q3

REPORT INFORMATION
  Report Type: 
  Country: None (occurrence: None)
  Receive Date: 20110725
  Receipt Date: 20110707
  Transmission Date: 20111222
  Serious: Yes (Other)
  Sender: FDA-Public Use
  Company Number: JHP201100337

PATIENT
  Age: 44 Year
  Sex: Male

DRUGS (16)
  1. GLYCOPYRROLATE [Concomitant]
  2. ISOFLURANE [Concomitant]
  3. NEOSTIGMINE (NEOSTIGMINE) [Concomitant]
  4. LIDOCAINE (LIDOCAINE HYDROCHLORIDE) [Concomitant]
  5. FENTANYL [Concomitant]
  6. BICARBONATE (SODIUM BICARBONATE) [Concomitant]
  7. LABETALOL HCL [Concomitant]
  8. NITROUS OXIDE W/ OXYGEN [Concomitant]
  9. VECURONIUM BROMIDE [Concomitant]
  10. SUCCINYLCHOLINE CHLORIDE [Concomitant]
  11. PROPOFOL [Concomitant]
  12. INDERAL [Concomitant]
  13. DANTROLENE SODIUM [Suspect]
     Indication: HYPERTHERMIA MALIGNANT
     Dosage: 1020 MG, TOTAL, INTRAVENOUS
     Route: 042
  14. REGLAN [Concomitant]
  15. MIDAZOLAM HYDROCHLORIDE [Concomitant]
  16. ZOFRAN [Concomitant]

REACTIONS (2)
  - INFUSION SITE EXTRAVASATION [None]
  - OEDEMA PERIPHERAL [None]
